FAERS Safety Report 9693775 (Version 1)
Quarter: 2013Q4

REPORT INFORMATION
  Report Type: Spontaneous
  Country: BE (occurrence: BE)
  Receive Date: 20131118
  Receipt Date: 20131118
  Transmission Date: 20140711
  Serious: Yes (Hospitalization)
  Sender: FDA-Public Use
  Company Number: BE-PFIZER INC-2013327024

PATIENT
  Age: 80 Year
  Sex: Male

DRUGS (10)
  1. CORDARONE [Suspect]
     Dosage: 200 MG, 1X/DAY
     Route: 048
     Dates: start: 20131008
  2. PRADAXA [Suspect]
     Dosage: 150 MG, 2X/DAY
     Route: 048
     Dates: start: 20131008
  3. SELOZOK [Concomitant]
     Dosage: UNK
  4. TICLID [Concomitant]
     Dosage: UNK
  5. APROVEL [Concomitant]
     Dosage: UNK
  6. SPIRIVA [Concomitant]
     Dosage: UNK
  7. SERETIDE [Concomitant]
     Dosage: UNK
  8. ATORVASTATIN [Concomitant]
     Dosage: UNK
  9. SERENASE [Concomitant]
     Dosage: UNK
  10. ASAFLOW [Concomitant]
     Dosage: UNK

REACTIONS (2)
  - Weight increased [Not Recovered/Not Resolved]
  - Dyspnoea [Not Recovered/Not Resolved]
